FAERS Safety Report 15042428 (Version 1)
Quarter: 2018Q2

REPORT INFORMATION
  Report Type: Spontaneous
  Country: US (occurrence: US)
  Receive Date: 20180531
  Receipt Date: 20180531
  Transmission Date: 20180711
  Serious: Yes (Hospitalization)
  Sender: FDA-Public Use
  Company Number: None

PATIENT
  Age: 56 Year
  Sex: Male
  Weight: 97.6 kg

DRUGS (2)
  1. OXCARBAZEPINE. [Concomitant]
     Active Substance: OXCARBAZEPINE
  2. TEMOZOLOMIDE. [Suspect]
     Active Substance: TEMOZOLOMIDE
     Dates: end: 20180523

REACTIONS (6)
  - Dizziness [None]
  - Diplopia [None]
  - Fall [None]
  - Headache [None]
  - Drug ineffective [None]
  - Blood sodium decreased [None]

NARRATIVE: CASE EVENT DATE: 20180524
